FAERS Safety Report 9158005 (Version 3)
Quarter: 2013Q2

REPORT INFORMATION
  Report Type: Report from Study
  Country: CA (occurrence: CA)
  Receive Date: 20130312
  Receipt Date: 20130509
  Transmission Date: 20140414
  Serious: Yes (Death)
  Sender: FDA-Public Use
  Company Number: CA-ROCHE-1199786

PATIENT
  Sex: Male

DRUGS (2)
  1. RANIBIZUMAB [Suspect]
     Indication: DIABETIC RETINAL OEDEMA
     Route: 050
     Dates: start: 20100325, end: 20100325
  2. RANIBIZUMAB [Suspect]
     Route: 065
     Dates: start: 20111006

REACTIONS (1)
  - Death [Fatal]
